FAERS Safety Report 13182202 (Version 2)
Quarter: 2017Q4

REPORT INFORMATION
  Report Type: Report from Study
  Country: IT (occurrence: IT)
  Receive Date: 20170202
  Receipt Date: 20171102
  Transmission Date: 20180320
  Serious: Yes (Hospitalization, Other)
  Sender: FDA-Public Use
  Company Number: IT-SEATTLE GENETICS-2017SGN00125

PATIENT
  Age: 46 Year
  Sex: Male
  Weight: 90 kg

DRUGS (16)
  1. LINEZOLID. [Concomitant]
     Active Substance: LINEZOLID
  2. TAZOCIN [Concomitant]
     Active Substance: PIPERACILLIN SODIUM\TAZOBACTAM SODIUM
  3. FLUBASON [Concomitant]
     Active Substance: DESOXIMETASONE
     Dosage: UNK
     Dates: start: 20161104
  4. SALICYLIC ACID. [Concomitant]
     Active Substance: SALICYLIC ACID
  5. PARACETAMOL [Concomitant]
     Active Substance: ACETAMINOPHEN
     Dosage: UNK
     Dates: start: 20161028, end: 20161104
  6. CHLORPHENIRAMINE                   /00072501/ [Concomitant]
     Active Substance: CHLORPHENIRAMINE
     Dosage: UNK
     Dates: start: 20161017
  7. URBASON                            /00049601/ [Concomitant]
     Active Substance: METHYLPREDNISOLONE
  8. BETAMETHASONE. [Concomitant]
     Active Substance: BETAMETHASONE
  9. CLOBESOL [Concomitant]
     Active Substance: CLOBETASOL PROPIONATE
  10. TRIMETON [Concomitant]
     Active Substance: CHLORPHENIRAMINE MALEATE
  11. BRENTUXIMAB VEDOTIN [Suspect]
     Active Substance: BRENTUXIMAB VEDOTIN
     Indication: HODGKIN^S DISEASE
     Dosage: 165.60 MG/KG, UNK
     Route: 042
     Dates: start: 20161015, end: 20161228
  12. NIVOLUMAB [Suspect]
     Active Substance: NIVOLUMAB
     Indication: HODGKIN^S DISEASE
     Dosage: 240 MG, UNK
     Route: 042
     Dates: start: 20161025
  13. CERCHIO [Concomitant]
  14. ACITRETINA [Concomitant]
     Active Substance: ACITRETIN
  15. ZOFRAN [Concomitant]
     Active Substance: ONDANSETRON HYDROCHLORIDE
     Dosage: UNK
     Dates: start: 20161014
  16. PANTORC [Concomitant]
     Active Substance: PANTOPRAZOLE SODIUM
     Dosage: UNK
     Dates: start: 20161014

REACTIONS (1)
  - Dermatitis exfoliative [Recovered/Resolved with Sequelae]

NARRATIVE: CASE EVENT DATE: 20170116
